FAERS Safety Report 9049644 (Version 2)
Quarter: 2013Q1

REPORT INFORMATION
  Report Type: Spontaneous
  Country: ZA (occurrence: ZA)
  Receive Date: 20130205
  Receipt Date: 20130211
  Transmission Date: 20140127
  Serious: Yes (Death)
  Sender: FDA-Public Use
  Company Number: ZA-009507513-1302ZAF000913

PATIENT
  Age: 24 Year
  Sex: Male

DRUGS (3)
  1. CANCIDAS [Suspect]
     Indication: ASPERGILLUS INFECTION
     Dosage: 70 MG LOADING DOSE
     Route: 042
     Dates: start: 20121012, end: 201210
  2. CANCIDAS [Suspect]
     Indication: ASPERGILLUS INFECTION
     Dosage: 50 MG  MAINTENANCE DOSE
     Dates: start: 201210, end: 20121028
  3. CORTICOSTEROIDS [Concomitant]

REACTIONS (3)
  - Treatment failure [Fatal]
  - Aspergillus infection [Fatal]
  - Diarrhoea haemorrhagic [None]
